FAERS Safety Report 5572516-6 (Version None)
Quarter: 2007Q4

REPORT INFORMATION
  Report Type: 
  Country: None (occurrence: None)
  Receive Date: 20071222
  Receipt Date: 20071212
  Transmission Date: 20080405
  Serious: Yes (Death, Other)
  Sender: FDA-Public Use
  Company Number: US-PFIZER INC-2007105027

PATIENT
  Sex: Female

DRUGS (1)
  1. LIPITOR [Suspect]

REACTIONS (4)
  - DEATH [None]
  - DERMATOMYOSITIS [None]
  - MYALGIA [None]
  - TENDONITIS [None]
